FAERS Safety Report 5225755-8 (Version None)
Quarter: 2007Q1

REPORT INFORMATION
  Report Type: 
  Country: None (occurrence: None)
  Receive Date: 20070131
  Receipt Date: 20070131
  Transmission Date: 20070707
  Serious: Yes (Hospitalization)
  Sender: FDA-Public Use
  Company Number: None

PATIENT
  Age: 66 Year
  Sex: Male
  Weight: 114 kg

DRUGS (8)
  1. IBUPROFEN [Suspect]
     Indication: SCIATICA
     Dosage: 800MG THREE TIMES DAILY PO
     Route: 048
     Dates: start: 20061017, end: 20061017
  2. TERAZOSIN [Concomitant]
  3. SIMVASTATIN [Concomitant]
  4. LISINOPRIL [Concomitant]
  5. NPH INSULIN [Concomitant]
  6. METOPROLOL SUCCINATE [Concomitant]
  7. DIAZEPAM [Concomitant]
  8. ACETAMINOPHEN AND HYDROCODONE BITARTRATE [Concomitant]

REACTIONS (12)
  - ABDOMINAL DISCOMFORT [None]
  - BLOOD GASES ABNORMAL [None]
  - BLOOD PRESSURE DECREASED [None]
  - DYSPNOEA [None]
  - HYPERGLYCAEMIA [None]
  - HYPERHIDROSIS [None]
  - NAUSEA [None]
  - PRURITUS [None]
  - RALES [None]
  - RASH [None]
  - VOMITING [None]
  - WHEEZING [None]
